FAERS Safety Report 7104618-7 (Version None)
Quarter: 2010Q4

REPORT INFORMATION
  Report Type: 
  Country: None (occurrence: None)
  Receive Date: 20101109
  Receipt Date: 20101026
  Transmission Date: 20110411
  Serious: Yes (Other)
  Sender: FDA-Public Use
  Company Number: 010530

PATIENT
  Age: 76 Year
  Sex: Male
  Weight: 68 kg

DRUGS (2)
  1. PLETAL [Suspect]
     Indication: CEREBRAL INFARCTION
     Dosage: 100 MG, BID, ORAL
     Route: 048
     Dates: start: 20100717, end: 20100718
  2. BLOPRESS(CANDESARTAN CILEXETIL) TABLET, 4MG [Suspect]
     Indication: HYPERTENSION
     Dosage: 4 MG, QD, ORAL
     Route: 048
     Dates: start: 20100717, end: 20100717

REACTIONS (4)
  - DRUG INTERACTION [None]
  - HEADACHE [None]
  - HYPOTENSION [None]
  - TACHYCARDIA [None]
